FAERS Safety Report 8796758 (Version 5)
Quarter: 2012Q4

REPORT INFORMATION
  Report Type: 
  Country: US (occurrence: US)
  Receive Date: 20120919
  Receipt Date: 20121211
  Transmission Date: 20130627
  Serious: Yes (Hospitalization)
  Sender: FDA-Public Use
  Company Number: US-GILEAD-2012-0061406

PATIENT
  Age: 59 Year
  Sex: Female

DRUGS (5)
  1. LETAIRIS [Suspect]
     Indication: PULMONARY ARTERIAL HYPERTENSION
     Dosage: 10 mg, UNK
     Route: 048
     Dates: start: 20071204
  2. LETAIRIS [Suspect]
     Indication: DRUG ABUSE
  3. LETAIRIS [Suspect]
     Indication: DRUG ABUSE
  4. REMODULIN [Concomitant]
  5. REVATIO [Concomitant]

REACTIONS (4)
  - Hip surgery [Unknown]
  - Pain [Unknown]
  - Incision site erythema [Unknown]
  - Incision site oedema [Unknown]
